FAERS Safety Report 15977621 (Version 1)
Quarter: 2019Q1

REPORT INFORMATION
  Report Type: Spontaneous
  Country: FR (occurrence: FR)
  Receive Date: 20190218
  Receipt Date: 20190218
  Transmission Date: 20190418
  Serious: Yes (Hospitalization)
  Sender: FDA-Public Use
  Company Number: PHHY2019FR034033

PATIENT
  Age: 46 Year
  Sex: Male
  Weight: 87 kg

DRUGS (1)
  1. VOLTARENE (DICLOFENAC SODIUM) [Suspect]
     Active Substance: DICLOFENAC SODIUM
     Indication: ARTHRALGIA
     Dosage: UNK
     Route: 048

REACTIONS (3)
  - Acute pulmonary oedema [Recovered/Resolved]
  - Acute kidney injury [Recovering/Resolving]
  - Nephrotic syndrome [Recovering/Resolving]

NARRATIVE: CASE EVENT DATE: 201808
